FAERS Safety Report 8035929-9 (Version None)
Quarter: 2012Q1

REPORT INFORMATION
  Report Type: 
  Country: None (occurrence: None)
  Receive Date: 20120111
  Receipt Date: 20111229
  Transmission Date: 20120608
  Serious: Yes (Hospitalization)
  Sender: FDA-Public Use
  Company Number: US-WATSON-2011-23182

PATIENT
  Age: 50 Year
  Sex: Female

DRUGS (2)
  1. ERYTHROMYCIN [Suspect]
     Indication: PNEUMONIA LEGIONELLA
     Dosage: TOTAL DOSE OF 4.25 G FOR 5 DAYS
     Route: 048
  2. ERYTHROMYCIN [Suspect]
     Dosage: 500 MG, UNK
     Route: 042

REACTIONS (2)
  - TINNITUS [None]
  - HYPOACUSIS [None]
